FAERS Safety Report 22368748 (Version 1)
Quarter: 2023Q2

REPORT INFORMATION
  Report Type: Spontaneous
  Country: HR (occurrence: HR)
  Receive Date: 20230525
  Receipt Date: 20230525
  Transmission Date: 20230721
  Serious: Yes (Other)
  Sender: FDA-Public Use
  Company Number: HR-BRISTOL-MYERS SQUIBB COMPANY-2023-071156

PATIENT
  Age: 66 Year
  Sex: Female

DRUGS (8)
  1. NIVOLUMAB [Suspect]
     Active Substance: NIVOLUMAB
     Indication: Product used for unknown indication
     Dates: start: 20221221
  2. NIVOLUMAB [Suspect]
     Active Substance: NIVOLUMAB
     Dates: start: 20230111
  3. NIVOLUMAB [Suspect]
     Active Substance: NIVOLUMAB
     Dates: start: 20230203
  4. NIVOLUMAB [Suspect]
     Active Substance: NIVOLUMAB
     Dates: start: 20230504
  5. NIVOLUMAB [Suspect]
     Active Substance: NIVOLUMAB
     Dates: start: 20230518
  6. IPILIMUMAB [Suspect]
     Active Substance: IPILIMUMAB
     Indication: Product used for unknown indication
     Dates: start: 20221221
  7. IPILIMUMAB [Suspect]
     Active Substance: IPILIMUMAB
     Dates: start: 20230111
  8. AXITINIB [Concomitant]
     Active Substance: AXITINIB
     Indication: Product used for unknown indication
     Dosage: FOR 31 DAY AT 3 MG,0, 2 MG DAILY
     Dates: start: 20221203, end: 20230104

REACTIONS (3)
  - Autoimmune hepatitis [Unknown]
  - Arthritis [Unknown]
  - Pulmonary venous thrombosis [Unknown]

NARRATIVE: CASE EVENT DATE: 20230202
